FAERS Safety Report 9590315 (Version 1)
Quarter: 2013Q4

REPORT INFORMATION
  Report Type: Spontaneous
  Country: US (occurrence: US)
  Receive Date: 20131003
  Receipt Date: 20131003
  Transmission Date: 20140711
  Serious: No
  Sender: FDA-Public Use
  Company Number: US-AMGEN-USASP2012076851

PATIENT
  Age: 60 Year
  Sex: Female
  Weight: 117.9 kg

DRUGS (13)
  1. ENBREL [Suspect]
     Indication: PSORIATIC ARTHROPATHY
     Dosage: 50 MG, QWK
     Route: 058
  2. VICODIN [Concomitant]
     Dosage: 5-300 MG
     Route: 048
  3. SYNTHROID [Concomitant]
     Dosage: 75 MCG
     Route: 048
  4. GLUCOPHAGE [Concomitant]
     Dosage: 1000 MG, UNK
     Route: 048
  5. LISINOPRIL [Concomitant]
     Dosage: 5 MG, UNK
     Route: 048
  6. ACTONEL [Concomitant]
     Dosage: 150 MG, UNK
     Route: 048
  7. CITRACAL PLUS [Concomitant]
     Dosage: UNK
     Route: 048
  8. PROPRANOLOL [Concomitant]
     Dosage: 20 MG, UNK
     Route: 048
  9. CRESTOR [Concomitant]
     Dosage: 10 MG, UNK
     Route: 048
  10. KEPPRA [Concomitant]
     Dosage: 250 MG, UNK
     Route: 048
  11. MULTIVITAMIN                       /00097801/ [Concomitant]
     Dosage: UNK
     Route: 048
  12. CALCIUM D                          /00944201/ [Concomitant]
     Dosage: UNK
     Route: 048
  13. FOLIC ACID [Concomitant]
     Dosage: UNK
     Route: 048

REACTIONS (3)
  - Pharyngitis streptococcal [Unknown]
  - Sinus disorder [Unknown]
  - Wheezing [Unknown]
